FAERS Safety Report 16964880 (Version 2)
Quarter: 2019Q4

REPORT INFORMATION
  Report Type: Spontaneous
  Country: US (occurrence: US)
  Receive Date: 20191028
  Receipt Date: 20191125
  Transmission Date: 20200122
  Serious: No
  Sender: FDA-Public Use
  Company Number: US-IPSEN BIOPHARMACEUTICALS, INC.-2019-19258

PATIENT
  Sex: Male

DRUGS (9)
  1. METFORMIN [Concomitant]
     Active Substance: METFORMIN HYDROCHLORIDE
  2. TESTOST CYP [Concomitant]
     Active Substance: TESTOSTERONE CYPIONATE
  3. MELOXICAM. [Concomitant]
     Active Substance: MELOXICAM
  4. CELECOXIB. [Concomitant]
     Active Substance: CELECOXIB
  5. VITAMIN D [Concomitant]
     Active Substance: VITAMIN D NOS
  6. OXYBUTYNIN. [Concomitant]
     Active Substance: OXYBUTYNIN CHLORIDE
  7. SOMATULINE DEPOT [Suspect]
     Active Substance: LANREOTIDE ACETATE
     Indication: ACROMEGALY
     Route: 058
     Dates: start: 20180725
  8. SOMAVERT [Concomitant]
     Active Substance: PEGVISOMANT
  9. A-HYDROCORT [Concomitant]
     Active Substance: HYDROCORTISONE SODIUM SUCCINATE

REACTIONS (4)
  - Blood cholesterol increased [Unknown]
  - Abdominal distension [Unknown]
  - Diarrhoea [Unknown]
  - Low density lipoprotein increased [Unknown]
